FAERS Safety Report 7237032-4 (Version None)
Quarter: 2011Q1

REPORT INFORMATION
  Report Type: 
  Country: None (occurrence: None)
  Receive Date: 20110121
  Receipt Date: 20110111
  Transmission Date: 20110831
  Serious: No
  Sender: FDA-Public Use
  Company Number: US-BIOGENIDEC-2011BI002094

PATIENT
  Sex: Female

DRUGS (3)
  1. STEROID [Concomitant]
  2. TYSABRI [Suspect]
     Indication: MULTIPLE SCLEROSIS
     Route: 042
     Dates: start: 20071213, end: 20081212
  3. AVONEX [Concomitant]
     Indication: MULTIPLE SCLEROSIS
     Route: 030
     Dates: start: 20070323

REACTIONS (3)
  - PAIN [None]
  - COGNITIVE DISORDER [None]
  - HYPERSENSITIVITY [None]
